FAERS Safety Report 25689013 (Version 2)
Quarter: 2025Q3

REPORT INFORMATION
  Report Type: Spontaneous
  Country: US (occurrence: US)
  Receive Date: 20250818
  Receipt Date: 20250821
  Transmission Date: 20251021
  Serious: No
  Sender: ROCHE
  Company Number: US-ROCHE-10000363000

PATIENT
  Age: 50 Year
  Sex: Female
  Weight: 79.38 kg

DRUGS (1)
  1. ACTEMRA [Suspect]
     Active Substance: TOCILIZUMAB
     Indication: Scleroderma
     Dosage: THIGH CLOSE TO MIDDLE OF HER BODY USING ACETEMRA PEN, LAST DOSE ON 31-JUL-2025
     Route: 058
     Dates: start: 2024

REACTIONS (5)
  - Product dose omission issue [Unknown]
  - Off label use [Unknown]
  - Device issue [Unknown]
  - Product quality issue [Unknown]
  - No adverse event [Unknown]

NARRATIVE: CASE EVENT DATE: 20240101
